FAERS Safety Report 6902046-8 (Version None)
Quarter: 2010Q3

REPORT INFORMATION
  Report Type: 
  Country: None (occurrence: None)
  Receive Date: 20100803
  Receipt Date: 20080414
  Transmission Date: 20110219
  Serious: No
  Sender: FDA-Public Use
  Company Number: US-PFIZER INC-2008032599

PATIENT
  Sex: Female

DRUGS (4)
  1. LYRICA [Suspect]
  2. HYDROMORPHONE HYDROCHLORIDE [Concomitant]
     Dates: start: 19960101
  3. REMERON [Concomitant]
  4. CYMBALTA [Concomitant]

REACTIONS (4)
  - ABNORMAL DREAMS [None]
  - NAUSEA [None]
  - THINKING ABNORMAL [None]
  - TREMOR [None]
